FAERS Safety Report 14996540 (Version 1)
Quarter: 2018Q2

REPORT INFORMATION
  Report Type: Spontaneous
  Country: US (occurrence: US)
  Receive Date: 20180518
  Receipt Date: 20180518
  Transmission Date: 20180711
  Serious: No
  Sender: FDA-Public Use
  Company Number: None

PATIENT
  Age: 68 Year
  Sex: Female

DRUGS (15)
  1. REMERON [Concomitant]
     Active Substance: MIRTAZAPINE
  2. LOPRESSOR [Concomitant]
     Active Substance: METOPROLOL TARTRATE
  3. FOSAMAX [Concomitant]
     Active Substance: ALENDRONATE SODIUM
  4. ADCIRCA [Concomitant]
     Active Substance: TADALAFIL
  5. WARFARIN [Concomitant]
     Active Substance: WARFARIN
  6. MYFORTIC [Concomitant]
     Active Substance: MYCOPHENOLATE SODIUM
  7. ALBUTEROLINHALTION  NEB SOLN [Concomitant]
  8. BIOTIN [Concomitant]
     Active Substance: BIOTIN
  9. CITRACAL [Concomitant]
     Active Substance: CALCIUM CITRATE
  10. OPXYGEN SUPPLEMENTAL [Concomitant]
  11. LETAIRIS [Suspect]
     Active Substance: AMBRISENTAN
     Indication: PULMONARY ARTERIAL HYPERTENSION
     Route: 048
     Dates: start: 201105
  12. ALLOPURINOL. [Concomitant]
     Active Substance: ALLOPURINOL
  13. PROGRAF [Concomitant]
     Active Substance: TACROLIMUS\TACROLIMUS ANHYDROUS
  14. LASIX [Concomitant]
     Active Substance: FUROSEMIDE
  15. VITAMIN D3 [Concomitant]
     Active Substance: CHOLECALCIFEROL

REACTIONS (1)
  - Dizziness [None]

NARRATIVE: CASE EVENT DATE: 20180512
